FAERS Safety Report 5139315-0 (Version None)
Quarter: 2006Q4

REPORT INFORMATION
  Report Type: 
  Country: None (occurrence: None)
  Receive Date: 20061024
  Receipt Date: 20061010
  Transmission Date: 20070319
  Serious: Yes (Hospitalization, Other)
  Sender: FDA-Public Use
  Company Number: 231034

PATIENT
  Age: 40 Year
  Sex: Female

DRUGS (2)
  1. HERCEPTIN [Suspect]
     Indication: BREAST CANCER
  2. TELITHROMYCIN (TELITHROMYCIN) [Concomitant]

REACTIONS (2)
  - CARDIAC ARREST [None]
  - SYNCOPE [None]
